FAERS Safety Report 9951405 (Version 1)
Quarter: 2014Q1

REPORT INFORMATION
  Report Type: Spontaneous
  Country: US (occurrence: US)
  Receive Date: 20140304
  Receipt Date: 20140304
  Transmission Date: 20141002
  Serious: No
  Sender: FDA-Public Use
  Company Number: US-ABBVIE-13P-163-1070695-00

PATIENT
  Age: 60 Year
  Sex: Female
  Weight: 115.32 kg

DRUGS (1)
  1. HUMIRA [Suspect]
     Indication: PSORIASIS
     Dates: start: 201203, end: 20130321

REACTIONS (2)
  - Tuberculin test positive [Not Recovered/Not Resolved]
  - Tuberculin test positive [Not Recovered/Not Resolved]
